FAERS Safety Report 8623613-X (Version None)
Quarter: 2012Q3

REPORT INFORMATION
  Report Type: 
  Country: None (occurrence: None)
  Receive Date: 20120827
  Receipt Date: 20120815
  Transmission Date: 20120928
  Serious: Yes (Disabling, Other)
  Sender: FDA-Public Use
  Company Number: BR-ELI_LILLY_AND_COMPANY-BR201208004804

PATIENT
  Sex: Male

DRUGS (1)
  1. FORTEO [Suspect]
     Dosage: UNK, UNKNOWN
     Route: 065

REACTIONS (6)
  - ABASIA [None]
  - LOSS OF CONSCIOUSNESS [None]
  - HAEMORRHAGIC STROKE [None]
  - APHASIA [None]
  - FEEDING DISORDER [None]
  - COGNITIVE DISORDER [None]
